FAERS Safety Report 5714868-X (Version None)
Quarter: 2008Q2

REPORT INFORMATION
  Report Type: 
  Country: None (occurrence: None)
  Receive Date: 20080423
  Receipt Date: 20070911
  Transmission Date: 20081010
  Serious: Yes (Other)
  Sender: FDA-Public Use
  Company Number: US-BAYER-US-2007-034155

PATIENT
  Age: 68 Year
  Sex: Female
  Weight: 48 kg

DRUGS (8)
  1. LEUKINE [Suspect]
     Indication: BREAST CANCER
     Route: 058
     Dates: start: 20070727, end: 20070728
  2. LEUKINE [Suspect]
     Route: 058
     Dates: start: 20070730
  3. GLUCOPHAGE - SLOW RELEASE [Concomitant]
     Route: 048
  4. LIPITOR [Concomitant]
  5. NOVOLOG [Concomitant]
     Route: 058
  6. VERAPAMIL [Concomitant]
  7. ZESTRIL [Concomitant]
  8. BYETTA [Concomitant]
     Route: 058

REACTIONS (2)
  - LOSS OF CONSCIOUSNESS [None]
  - PRESYNCOPE [None]
